FAERS Safety Report 5653635-2 (Version None)
Quarter: 2008Q1

REPORT INFORMATION
  Report Type: 
  Country: None (occurrence: None)
  Receive Date: 20080306
  Receipt Date: 20080303
  Transmission Date: 20080703
  Serious: Yes (Other)
  Sender: FDA-Public Use
  Company Number: US-JNJFOC-20080201540

PATIENT
  Sex: Male
  Weight: 99.79 kg

DRUGS (5)
  1. RISPERDAL [Suspect]
     Route: 048
  2. RISPERDAL [Suspect]
     Route: 048
  3. RISPERDAL [Suspect]
     Indication: SCHIZOPHRENIA
     Route: 048
  4. HALDOL [Concomitant]
     Indication: MANIA
  5. ANTIBIOTICS [Concomitant]
     Indication: STAPHYLOCOCCAL INFECTION

REACTIONS (4)
  - DRUG INEFFECTIVE [None]
  - MANIA [None]
  - STAPHYLOCOCCAL INFECTION [None]
  - WEIGHT INCREASED [None]
